FAERS Safety Report 5620712-1 (Version None)
Quarter: 2008Q1

REPORT INFORMATION
  Report Type: 
  Country: None (occurrence: None)
  Receive Date: 20080208
  Receipt Date: 20080207
  Transmission Date: 20080703
  Serious: Yes (Hospitalization)
  Sender: FDA-Public Use
  Company Number: FR-MERCK-0704FRA00069

PATIENT
  Age: 16 Year
  Sex: Male

DRUGS (7)
  1. STROMECTOL [Suspect]
     Indication: ACARODERMATITIS
     Route: 048
     Dates: start: 20050801, end: 20050801
  2. STROMECTOL [Suspect]
     Route: 048
     Dates: start: 20060801, end: 20060801
  3. DOMPERIDONE [Concomitant]
     Route: 048
     Dates: start: 20060101, end: 20060101
  4. HEXETIDINE [Concomitant]
     Dates: start: 20060101, end: 20060101
  5. BICLOTYMOL AND ENOXOLONE AND LYSOZYME CHLORIDE [Concomitant]
     Route: 048
     Dates: start: 20060101, end: 20060101
  6. ALPHA AMYLASE [Concomitant]
     Route: 048
     Dates: start: 20060101, end: 20060101
  7. ACETAMINOPHEN [Suspect]
     Route: 048
     Dates: start: 20060101, end: 20060101

REACTIONS (1)
  - APLASTIC ANAEMIA [None]
